FAERS Safety Report 22806039 (Version 3)
Quarter: 2023Q4

REPORT INFORMATION
  Report Type: Spontaneous
  Country: VE (occurrence: VE)
  Receive Date: 20230809
  Receipt Date: 20231123
  Transmission Date: 20240109
  Serious: Yes (Hospitalization, Other)
  Sender: FDA-Public Use
  Company Number: VE-009507513-2303VEN004985

PATIENT
  Age: 21 Year
  Sex: Female

DRUGS (3)
  1. TEMODAL [Suspect]
     Active Substance: TEMOZOLOMIDE
     Indication: Brain neoplasm malignant
     Dosage: 100 MILLIGRAMS DAILY
     Route: 048
     Dates: end: 202302
  2. TEMODAL [Suspect]
     Active Substance: TEMOZOLOMIDE
     Dosage: 200 MILLIGRAMS CYCLES EVERY 28 DAYS
     Route: 048
     Dates: start: 202302
  3. TEMODAL [Suspect]
     Active Substance: TEMOZOLOMIDE
     Dosage: 200 MG FOR 5 DAYS, EVERY 28 DAYS
     Route: 048
     Dates: start: 20230506

REACTIONS (12)
  - Cerebral cyst [Unknown]
  - Malignant neoplasm progression [Unknown]
  - Presyncope [Unknown]
  - Malaise [Unknown]
  - Nausea [Recovered/Resolved]
  - Abdominal pain lower [Recovered/Resolved]
  - Decreased appetite [Unknown]
  - Weight decreased [Unknown]
  - Vomiting [Recovered/Resolved]
  - Drug ineffective [Unknown]
  - Product availability issue [Unknown]
  - Incorrect dose administered [Unknown]

NARRATIVE: CASE EVENT DATE: 20230101
